FAERS Safety Report 14332974 (Version 1)
Quarter: 2017Q4

REPORT INFORMATION
  Report Type: Spontaneous
  Country: US (occurrence: US)
  Receive Date: 20171228
  Receipt Date: 20171228
  Transmission Date: 20180321
  Serious: No
  Sender: FDA-Public Use
  Company Number: US-PURACAP PHARMACEUTICAL LLC-2017EPC00038

PATIENT
  Age: 66 Year
  Sex: Female
  Weight: 108.84 kg

DRUGS (6)
  1. DOXYCYCLINE HYCLATE. [Suspect]
     Active Substance: DOXYCYCLINE HYCLATE
     Indication: RESPIRATORY TRACT INFECTION
     Dosage: 1 TABLETS, 2X/DAY
     Route: 048
     Dates: start: 20170228, end: 20170306
  2. OMEPRAZOLE. [Concomitant]
     Active Substance: OMEPRAZOLE
  3. PRAVASTATIN. [Concomitant]
     Active Substance: PRAVASTATIN
  4. COQ10 [Concomitant]
     Active Substance: UBIDECARENONE
  5. DOXYCYCLINE HYCLATE. [Suspect]
     Active Substance: DOXYCYCLINE HYCLATE
     Indication: PNEUMONIA
  6. SYNTHROID [Concomitant]
     Active Substance: LEVOTHYROXINE SODIUM

REACTIONS (4)
  - Peripheral swelling [Unknown]
  - Inflammation [Unknown]
  - Movement disorder [Unknown]
  - Arthralgia [Recovered/Resolved]

NARRATIVE: CASE EVENT DATE: 201703
